FAERS Safety Report 20021157 (Version 2)
Quarter: 2021Q4

REPORT INFORMATION
  Report Type: Report from Study
  Country: CA (occurrence: CA)
  Receive Date: 20211101
  Receipt Date: 20211112
  Transmission Date: 20220303
  Serious: Yes (Death, Disabling, Other)
  Sender: FDA-Public Use
  Company Number: CA-NOVARTISPH-NVSC2021CA228967

PATIENT
  Age: 69 Year
  Sex: Male
  Weight: 73 kg

DRUGS (10)
  1. AFINITOR [Suspect]
     Active Substance: EVEROLIMUS
     Indication: Lymphoma
     Dosage: 10 MG DAILY
     Route: 048
     Dates: start: 20201028, end: 20201112
  2. AFINITOR [Suspect]
     Active Substance: EVEROLIMUS
     Indication: Neuroendocrine carcinoma metastatic
  3. HALOPERIDOL [Concomitant]
     Active Substance: HALOPERIDOL
     Indication: Product used for unknown indication
     Dosage: UNK
     Route: 065
  4. HYDROMORPHONE HCL [Concomitant]
     Active Substance: HYDROMORPHONE HYDROCHLORIDE
     Indication: Product used for unknown indication
     Dosage: UNK
     Route: 065
  5. ONDANSETRON [Concomitant]
     Active Substance: ONDANSETRON
     Indication: Product used for unknown indication
     Dosage: UNK
     Route: 065
  6. METOCLOPRAMIDE HYDROCHLORIDE [Concomitant]
     Active Substance: METOCLOPRAMIDE HYDROCHLORIDE
     Indication: Product used for unknown indication
     Dosage: UNK
     Route: 065
  7. OCTREOTIDE [Concomitant]
     Active Substance: OCTREOTIDE
     Indication: Product used for unknown indication
     Dosage: 30 MG, Q4W
     Route: 065
     Dates: end: 20201209
  8. GLICLAZIDE [Concomitant]
     Active Substance: GLICLAZIDE
     Indication: Product used for unknown indication
     Dosage: UNK
     Route: 065
  9. LANSOPRAZOLE [Concomitant]
     Active Substance: LANSOPRAZOLE
     Indication: Product used for unknown indication
     Dosage: UNK
     Route: 065
  10. FERROUS FUMARATE [Concomitant]
     Active Substance: FERROUS FUMARATE
     Indication: Product used for unknown indication
     Dosage: UNK
     Route: 065

REACTIONS (17)
  - Renal impairment [Fatal]
  - Acute kidney injury [Fatal]
  - Neuroendocrine carcinoma metastatic [Fatal]
  - Malignant neoplasm progression [Fatal]
  - Urine output decreased [Fatal]
  - Nausea [Fatal]
  - Fatigue [Fatal]
  - Vomiting [Fatal]
  - Abdominal discomfort [Fatal]
  - Abdominal pain lower [Fatal]
  - Asthenia [Fatal]
  - Blood alkaline phosphatase increased [Fatal]
  - Weight decreased [Fatal]
  - Decreased appetite [Fatal]
  - Malaise [Fatal]
  - Blood creatinine increased [Fatal]
  - Musculoskeletal discomfort [Unknown]

NARRATIVE: CASE EVENT DATE: 20201112
